FAERS Safety Report 5489501-5 (Version None)
Quarter: 2007Q4

REPORT INFORMATION
  Report Type: 
  Country: None (occurrence: None)
  Receive Date: 20071018
  Receipt Date: 20071007
  Transmission Date: 20080405
  Serious: Yes (Hospitalization)
  Sender: FDA-Public Use
  Company Number: IL-AMGEN-US248022

PATIENT
  Age: 49 Year
  Sex: Male

DRUGS (3)
  1. ENBREL [Suspect]
     Indication: RHEUMATOID ARTHRITIS
     Route: 058
     Dates: start: 20061101, end: 20070901
  2. PREDNISONE [Concomitant]
     Dosage: 5 MG; FREQUENCY NOT SPECIFIED
     Route: 048
  3. METHOTREXATE [Concomitant]
     Indication: RHEUMATOID ARTHRITIS
     Dosage: NOT SPECIFIED
     Route: 048

REACTIONS (1)
  - ENDOCARDITIS STAPHYLOCOCCAL [None]
